FAERS Safety Report 6932996-8 (Version None)
Quarter: 2010Q3

REPORT INFORMATION
  Report Type: 
  Country: None (occurrence: None)
  Receive Date: 20100818
  Receipt Date: 20100818
  Transmission Date: 20110219
  Serious: Yes (Hospitalization)
  Sender: FDA-Public Use
  Company Number: None

PATIENT
  Sex: Female
  Weight: 74.3899 kg

DRUGS (2)
  1. EVISTA [Suspect]
     Indication: OSTEOPOROSIS
     Dosage: QD MOUTH
     Route: 048
     Dates: start: 20091001
  2. EVISTA [Suspect]
     Indication: OSTEOPOROSIS
     Dosage: QD MOUTH
     Route: 048
     Dates: start: 20100731

REACTIONS (7)
  - CHEST PAIN [None]
  - DYSPNOEA [None]
  - HEADACHE [None]
  - HYPERHIDROSIS [None]
  - MUSCLE SPASMS [None]
  - NAUSEA [None]
  - VISUAL IMPAIRMENT [None]
